FAERS Safety Report 15385401 (Version 1)
Quarter: 2018Q3

REPORT INFORMATION
  Report Type: Spontaneous
  Country: FR (occurrence: FR)
  Receive Date: 20180914
  Receipt Date: 20180914
  Transmission Date: 20181010
  Serious: Yes (Other)
  Sender: FDA-Public Use
  Company Number: FR-ACCORD-071972

PATIENT
  Age: 84 Year
  Sex: Male
  Weight: 85 kg

DRUGS (11)
  1. ELIQUIS [Suspect]
     Active Substance: APIXABAN
     Indication: ATRIAL FIBRILLATION
     Route: 048
     Dates: start: 20180611, end: 20180709
  2. PARACETAMOL [Suspect]
     Active Substance: ACETAMINOPHEN
     Indication: PAIN
     Route: 042
     Dates: start: 20180709, end: 20180709
  3. GENTAMICIN. [Suspect]
     Active Substance: GENTAMICIN
     Indication: INFECTION
     Route: 042
     Dates: start: 20180709, end: 20180709
  4. ONDANSETRON [Suspect]
     Active Substance: ONDANSETRON
     Indication: PROPHYLAXIS
     Route: 042
     Dates: start: 20180709, end: 20180709
  5. PROPOFOL. [Suspect]
     Active Substance: PROPOFOL
     Indication: ANAESTHESIA
     Route: 042
     Dates: start: 20180709, end: 20180709
  6. ESMERON [Suspect]
     Active Substance: ROCURONIUM BROMIDE
     Indication: ANAESTHESIA
     Route: 042
     Dates: start: 20180709, end: 20180709
  7. CUBICIN [Suspect]
     Active Substance: DAPTOMYCIN
     Indication: INFECTION
     Route: 042
     Dates: start: 20180709, end: 20180710
  8. TRAMADOL. [Suspect]
     Active Substance: TRAMADOL
     Indication: PAIN
     Route: 042
     Dates: start: 20180709, end: 20180710
  9. SUFENTANIL [Suspect]
     Active Substance: SUFENTANIL
     Indication: ANAESTHESIA
     Route: 042
     Dates: start: 20180709, end: 20180712
  10. OXYNORM [Suspect]
     Active Substance: OXYCODONE HYDROCHLORIDE
     Indication: PAIN
     Route: 042
     Dates: start: 20180709, end: 20180709
  11. AZACTAM [Suspect]
     Active Substance: AZTREONAM
     Indication: INFECTION
     Route: 042
     Dates: start: 20180709, end: 20180709

REACTIONS (2)
  - Blood alkaline phosphatase increased [Recovering/Resolving]
  - Hypertransaminasaemia [Recovered/Resolved]

NARRATIVE: CASE EVENT DATE: 20180710
